FAERS Safety Report 9157755 (Version 1)
Quarter: 2013Q1

REPORT INFORMATION
  Report Type: Spontaneous
  Country: DK (occurrence: None)
  Receive Date: 20130213
  Receipt Date: 20130213
  Transmission Date: 20140127
  Serious: Yes (Hospitalization)
  Sender: FDA-Public Use
  Company Number: 2013MA000953

PATIENT
  Age: 47 Year
  Sex: Female

DRUGS (8)
  1. ALPRAZOLAM TABLETS USP, 2 MG (PUREPAC) (ALPRAZOLAM) [Suspect]
     Dosage: 20 DF; TOTAL; PO
     Route: 048
     Dates: start: 20120912
  2. ZOLPIDEM TARTRATE EXTENDED-RELEASE TABLETS 12.5MG (ASALLC) (ZOLPIDEM) [Suspect]
     Dosage: 30 DF; TOTAL; PO
     Route: 048
     Dates: start: 20120912
  3. LITHIUM [Concomitant]
  4. PREGABALIN [Concomitant]
  5. VALPROIC ACID [Concomitant]
  6. VENLAFAXINE [Concomitant]
  7. CLOZAPINE [Concomitant]
  8. LEVOTHYROXINE SODIUM [Concomitant]

REACTIONS (4)
  - Sopor [None]
  - Toxicity to various agents [None]
  - Drug abuse [None]
  - Overdose [None]
